FAERS Safety Report 26087497 (Version 1)
Quarter: 2025Q4

REPORT INFORMATION
  Report Type: Spontaneous
  Country: US (occurrence: US)
  Receive Date: 20251125
  Receipt Date: 20251125
  Transmission Date: 20260118
  Serious: Yes (Hospitalization)
  Sender: KALVISTA PHARMACEUTICALS
  Company Number: US-KP-00131

PATIENT
  Age: 62 Year
  Sex: Female

DRUGS (1)
  1. EKTERLY [Suspect]
     Active Substance: SEBETRALSTAT
     Indication: Hereditary angioedema
     Dosage: TIME INTERVAL: AS NECESSARY

REACTIONS (2)
  - Dysphagia [Unknown]
  - Hereditary angioedema [Unknown]
